FAERS Safety Report 10133733 (Version 1)
Quarter: 2014Q2

REPORT INFORMATION
  Report Type: Spontaneous
  Country: US (occurrence: US)
  Receive Date: 20140428
  Receipt Date: 20140428
  Transmission Date: 20141212
  Serious: No
  Sender: FDA-Public Use
  Company Number: US-ASTRAZENECA-2014SE25446

PATIENT
  Age: 73 Year
  Sex: Male
  Weight: 61.2 kg

DRUGS (5)
  1. BUDESONIDE [Suspect]
     Indication: DIARRHOEA
     Route: 048
     Dates: start: 20140404
  2. DONEPEZIL [Concomitant]
     Indication: MEMORY IMPAIRMENT
  3. GINKO BILOBA [Concomitant]
     Dosage: NR DAILY
  4. VIT B [Concomitant]
     Dosage: NR DAILY
  5. SAW PALMETTO [Concomitant]
     Dosage: NR DAILY

REACTIONS (2)
  - Constipation [Unknown]
  - Off label use [Unknown]
